FAERS Safety Report 10094597 (Version 1)
Quarter: 2014Q2

REPORT INFORMATION
  Report Type: Spontaneous
  Country: US (occurrence: US)
  Receive Date: 20140422
  Receipt Date: 20140422
  Transmission Date: 20141212
  Serious: No
  Sender: FDA-Public Use
  Company Number: US-PFIZER INC-2014109982

PATIENT
  Age: 58 Year
  Sex: Male

DRUGS (8)
  1. CELEBREX [Suspect]
     Dosage: 200 MG, UNK
  2. LYRICA [Suspect]
     Dosage: 150 MG, 2X/DAY
     Route: 048
  3. SEROQUEL [Concomitant]
     Dosage: 100 MG, 1X/DAY (QHS)
  4. OXYCODONE [Concomitant]
     Dosage: 30 MG, UNK
  5. NUVIGIL [Concomitant]
     Dosage: 250 MG, UNK
  6. KLONOPIN [Concomitant]
     Dosage: 1 MG, UNK
  7. DULCOLAX [Concomitant]
     Dosage: UNK
  8. PEPCID [Concomitant]
     Dosage: UNK

REACTIONS (3)
  - Mental disorder [Unknown]
  - General physical health deterioration [Unknown]
  - Malaise [Unknown]
